FAERS Safety Report 5940358 (Version 3)
Quarter: 2019Q1

REPORT INFORMATION
  Report Type: Spontaneous
  Country: DE (occurrence: DE)
  Receive Date: 20051213
  Receipt Date: 20190214
  Transmission Date: 20190418
  Serious: Yes (Death, Other)
  Sender: FDA-Public Use
  Company Number: DE-JNJFOC-20051202113

PATIENT
  Sex: Female

DRUGS (6)
  1. CAELYX [Suspect]
     Active Substance: DOXORUBICIN HYDROCHLORIDE
     Indication: GASTRIC CANCER
     Dosage: 1 HOUR INFUSION ON DAYS 1 AND 29 (X 2 CYCLES)
     Route: 042
  2. MITOMYCIN. [Suspect]
     Active Substance: MITOMYCIN
     Indication: GASTRIC CANCER
     Dosage: DAYS 8 AND 36 (X 2 CYCLES)
     Route: 040
  3. 5-FLUOROURACIL [Suspect]
     Active Substance: FLUOROURACIL
     Indication: GASTRIC CANCER
     Dosage: 24-HOUR CONTINUOUS INFUSION
     Route: 042
  4. DEXAMETHASONE. [Concomitant]
     Active Substance: DEXAMETHASONE
  5. CLEMASTINE [Concomitant]
     Active Substance: CLEMASTINE
     Route: 042
  6. FOLINIC ACID [Concomitant]
     Active Substance: LEUCOVORIN
     Indication: GASTRIC CANCER
     Dosage: 24-HOUR CONTINUOUS INFUSION
     Route: 042

REACTIONS (4)
  - Gastric cancer [Fatal]
  - Product use in unapproved indication [Unknown]
  - Haemolytic uraemic syndrome [Unknown]
  - Off label use [Unknown]
